FAERS Safety Report 12366980 (Version 1)
Quarter: 2016Q2

REPORT INFORMATION
  Report Type: Spontaneous
  Country: US (occurrence: US)
  Receive Date: 20160513
  Receipt Date: 20160513
  Transmission Date: 20160815
  Serious: No
  Sender: FDA-Public Use
  Company Number: US-PFIZER INC-2016225840

PATIENT
  Age: 66 Year
  Sex: Female
  Weight: 86.17 kg

DRUGS (1)
  1. LYRICA [Suspect]
     Active Substance: PREGABALIN
     Indication: FIBROMYALGIA
     Dosage: 375 MG, UNK
     Route: 048
     Dates: end: 20160409

REACTIONS (7)
  - Pain of skin [Unknown]
  - Insomnia [Unknown]
  - Discomfort [Unknown]
  - Drug withdrawal syndrome [Unknown]
  - Skin tightness [Unknown]
  - Depression [Unknown]
  - Pain [Unknown]
